FAERS Safety Report 4713606-7 (Version None)
Quarter: 2005Q3

REPORT INFORMATION
  Report Type: 
  Country: None (occurrence: None)
  Receive Date: 20050713
  Receipt Date: 20050706
  Transmission Date: 20060218
  Serious: Yes (Hospitalization)
  Sender: FDA-Public Use
  Company Number: PHHO2005JP10886

PATIENT
  Age: 92 Year
  Sex: Female
  Weight: 47 kg

DRUGS (4)
  1. DIOVAN [Suspect]
     Indication: HYPERTENSION
     Dosage: 80 MG, QD
     Route: 048
     Dates: start: 20021218, end: 20050114
  2. APRESOLINE [Concomitant]
     Indication: HYPERTENSION
     Dosage: 60 MG
     Route: 048
     Dates: start: 19970101, end: 20040917
  3. MINIPRESS [Concomitant]
     Indication: HYPERTENSION
     Dosage: 1.5 MG
     Dates: start: 19970101, end: 20040917
  4. HERBESSER [Concomitant]
     Indication: HYPERTENSION
     Dosage: 90 MG
     Route: 048
     Dates: start: 19970101, end: 20041201

REACTIONS (4)
  - ACUTE MYOCARDIAL INFARCTION [None]
  - ANGINA PECTORIS [None]
  - LOSS OF CONSCIOUSNESS [None]
  - TRANSIENT ISCHAEMIC ATTACK [None]
